FAERS Safety Report 21744730 (Version 1)
Quarter: 2022Q4

REPORT INFORMATION
  Report Type: Report from Study
  Country: BE (occurrence: BE)
  Receive Date: 20221219
  Receipt Date: 20221219
  Transmission Date: 20230113
  Serious: Yes (Other)
  Sender: FDA-Public Use
  Company Number: BE-BRISTOL-MYERS SQUIBB COMPANY-2022-145213

PATIENT

DRUGS (25)
  1. DEXAMETHASONE [Suspect]
     Active Substance: DEXAMETHASONE
     Indication: Plasma cell myeloma
     Dosage: 40 MG FREQUENCY TEXT: NOT PROVIDED
     Route: 065
     Dates: start: 20150403
  2. DEXAMETHASONE [Suspect]
     Active Substance: DEXAMETHASONE
     Dosage: 40 MG FREQUENCY TEXT: NOT PROVIDED
     Route: 065
     Dates: start: 20150410
  3. DEXAMETHASONE [Suspect]
     Active Substance: DEXAMETHASONE
     Dosage: 40 MG FREQUENCY TEXT: NOT PROVIDED
     Route: 065
     Dates: start: 20150417
  4. DEXAMETHASONE [Suspect]
     Active Substance: DEXAMETHASONE
     Dosage: 40 MG FREQUENCY TEXT: NOT PROVIDED
     Route: 065
     Dates: start: 20150424
  5. DEXAMETHASONE [Suspect]
     Active Substance: DEXAMETHASONE
     Dosage: 40 MG FREQUENCY TEXT: NOT PROVIDED
     Route: 065
     Dates: start: 20150612
  6. DEXAMETHASONE [Suspect]
     Active Substance: DEXAMETHASONE
     Dosage: 40 MG FREQUENCY TEXT: NOT PROVIDED
     Route: 065
     Dates: start: 20150619
  7. DEXAMETHASONE [Suspect]
     Active Substance: DEXAMETHASONE
     Dosage: 40 MG FREQUENCY TEXT: NOT PROVIDED
     Route: 065
     Dates: start: 20150626
  8. DEXAMETHASONE [Suspect]
     Active Substance: DEXAMETHASONE
     Dosage: 40 MG FREQUENCY TEXT: NOT PROVIDED
     Route: 065
     Dates: start: 20150703
  9. DEXAMETHASONE [Suspect]
     Active Substance: DEXAMETHASONE
     Dosage: 40 MG FREQUENCY TEXT: NOT PROVIDED
     Route: 065
     Dates: start: 20150807
  10. DEXAMETHASONE [Suspect]
     Active Substance: DEXAMETHASONE
     Dosage: 40 MG FREQUENCY TEXT: NOT PROVIDED
     Route: 065
     Dates: start: 20150814
  11. DEXAMETHASONE [Suspect]
     Active Substance: DEXAMETHASONE
     Dosage: 40 MG FREQUENCY TEXT: NOT PROVIDED
     Route: 065
     Dates: start: 20150821
  12. DEXAMETHASONE [Suspect]
     Active Substance: DEXAMETHASONE
     Dosage: 40 MG FREQUENCY TEXT: NOT PROVIDED
     Route: 065
     Dates: start: 20150828
  13. DEXAMETHASONE [Suspect]
     Active Substance: DEXAMETHASONE
     Dosage: 40 MG FREQUENCY TEXT: NOT PROVIDED
     Route: 065
     Dates: start: 20150911
  14. DEXAMETHASONE [Suspect]
     Active Substance: DEXAMETHASONE
     Dosage: 40 MG FREQUENCY TEXT: NOT PROVIDED
     Route: 065
     Dates: start: 20150918
  15. DEXAMETHASONE [Suspect]
     Active Substance: DEXAMETHASONE
     Dosage: 40 MG FREQUENCY TEXT: NOT PROVIDED
     Route: 065
     Dates: start: 20150925
  16. DEXAMETHASONE [Suspect]
     Active Substance: DEXAMETHASONE
     Dosage: 40 MG FREQUENCY TEXT: NOT PROVIDED
     Route: 065
     Dates: start: 20151002
  17. DEXAMETHASONE [Suspect]
     Active Substance: DEXAMETHASONE
     Dosage: 40 MG FREQUENCY TEXT: NOT PROVIDED
     Route: 065
     Dates: start: 20151009
  18. DEXAMETHASONE [Suspect]
     Active Substance: DEXAMETHASONE
     Dosage: 40 MG FREQUENCY TEXT: NOT PROVIDED
     Route: 065
     Dates: start: 20151016
  19. DEXAMETHASONE [Suspect]
     Active Substance: DEXAMETHASONE
     Dosage: 40 MG FREQUENCY TEXT: NOT PROVIDED
     Route: 065
     Dates: start: 20151023
  20. DEXAMETHASONE [Suspect]
     Active Substance: DEXAMETHASONE
     Dosage: 40 MG FREQUENCY TEXT: NOT PROVIDED
     Route: 065
     Dates: start: 20151030
  21. POMALIDOMIDE [Suspect]
     Active Substance: POMALIDOMIDE
     Indication: Plasma cell myeloma
     Dosage: 4 MG FREQUENCY TEXT: NOT PROVIDED
     Route: 048
     Dates: start: 20150409, end: 20150429
  22. POMALIDOMIDE [Suspect]
     Active Substance: POMALIDOMIDE
     Dosage: 4 MG FREQUENCY TEXT: NOT PROVIDED
     Route: 048
     Dates: start: 20150611, end: 20150701
  23. POMALIDOMIDE [Suspect]
     Active Substance: POMALIDOMIDE
     Dosage: 4 MG FREQUENCY TEXT: NOT PROVIDED
     Route: 048
     Dates: start: 20150807, end: 20150827
  24. POMALIDOMIDE [Suspect]
     Active Substance: POMALIDOMIDE
     Dosage: 3 MG FREQUENCY TEXT: NOT PROVIDED
     Route: 048
     Dates: start: 20150911, end: 20151001
  25. POMALIDOMIDE [Suspect]
     Active Substance: POMALIDOMIDE
     Dosage: 3 MG FREQUENCY TEXT: NOT PROVIDED
     Route: 048
     Dates: start: 20151009, end: 20151029

REACTIONS (2)
  - Neutropenia [Not Recovered/Not Resolved]
  - Neutropenia [Recovered/Resolved]

NARRATIVE: CASE EVENT DATE: 20150825
